FAERS Safety Report 14730193 (Version 5)
Quarter: 2018Q3

REPORT INFORMATION
  Report Type: Spontaneous
  Country: CA (occurrence: CA)
  Receive Date: 20180406
  Receipt Date: 20180828
  Transmission Date: 20181010
  Serious: Yes (Other)
  Sender: FDA-Public Use
  Company Number: CA-CELLTRION INC.-2017CA017511

PATIENT

DRUGS (12)
  1. INFLECTRA [Suspect]
     Active Substance: INFLIXIMAB-DYYB
     Dosage: 400 MG, CYCLIC, EVERY6 TO 8 WEEKS MAINTENANCE
     Route: 042
     Dates: start: 20171219
  2. INFLECTRA [Suspect]
     Active Substance: INFLIXIMAB-DYYB
     Dosage: 400 MG, CYCLIC, EVERY6 TO 8 WEEKS MAINTENANCE
     Route: 042
     Dates: start: 20180413
  3. TYLENOL EXTRA STRENGTH [Concomitant]
     Active Substance: ACETAMINOPHEN
  4. INFLECTRA [Suspect]
     Active Substance: INFLIXIMAB-DYYB
     Dosage: 400 MG, CYCLIC, EVERY 6 TO 8 WEEKS MAINTENANCE
     Route: 042
     Dates: start: 20180815
  5. INFLECTRA [Suspect]
     Active Substance: INFLIXIMAB-DYYB
     Dosage: 400 MG, CYCLIC, EVERY 6 TO 8 WEEKS MAINTENANCE
     Route: 042
     Dates: start: 20180815
  6. METHOTREXATE. [Concomitant]
     Active Substance: METHOTREXATE
  7. NAPROXEN 1 A PHARMA [Concomitant]
  8. INFLECTRA [Suspect]
     Active Substance: INFLIXIMAB-DYYB
     Indication: RHEUMATOID ARTHRITIS
     Dosage: 400 MG, CYCLIC, EVERY 8 WEEKS MAINTENANCE
     Route: 042
     Dates: start: 20170424, end: 20170925
  9. INFLECTRA [Suspect]
     Active Substance: INFLIXIMAB-DYYB
     Dosage: 400 MG, CYCLIC, EVERY6 TO 8 WEEKS MAINTENANCE
     Route: 042
     Dates: start: 20180524
  10. INFLECTRA [Suspect]
     Active Substance: INFLIXIMAB-DYYB
     Dosage: 400 MG, CYCLIC, EVERY 6 TO 8 WEEKS MAINTENANCE
     Route: 042
     Dates: start: 20180704
  11. INFLECTRA [Suspect]
     Active Substance: INFLIXIMAB-DYYB
     Dosage: 400 MG, CYCLIC, EVERY6 TO 8 WEEKS MAINTENANCE
     Route: 042
     Dates: start: 20171108
  12. INFLECTRA [Suspect]
     Active Substance: INFLIXIMAB-DYYB
     Dosage: 400 MG, CYCLIC, EVERY 6 TO 8 WEEKS MAINTENANCE
     Route: 042
     Dates: start: 20180815

REACTIONS (5)
  - Urticaria [Recovered/Resolved]
  - Pruritus [Recovered/Resolved]
  - Product use issue [Unknown]
  - Spinal column stenosis [Recovering/Resolving]
  - Blood pressure decreased [Unknown]

NARRATIVE: CASE EVENT DATE: 20170424
